FAERS Safety Report 5200110-5 (Version None)
Quarter: 2007Q1

REPORT INFORMATION
  Report Type: 
  Country: None (occurrence: None)
  Receive Date: 20070105
  Receipt Date: 20070102
  Transmission Date: 20070707
  Serious: Yes (Hospitalization)
  Sender: FDA-Public Use
  Company Number: FR-GLAXOSMITHKLINE-B0452150A

PATIENT
  Age: 60 Year
  Sex: Female

DRUGS (8)
  1. AUGMENTIN '125' [Suspect]
     Dosage: 3G THREE TIMES PER DAY
     Route: 048
     Dates: start: 20061115, end: 20061124
  2. TROSPIUM CHLORIDE [Concomitant]
     Dosage: 20MG PER DAY
     Route: 065
  3. TRIVASTAL [Concomitant]
     Dosage: 50MG PER DAY
     Route: 065
  4. ASPIRIN [Concomitant]
     Dosage: 300MG PER DAY
     Route: 065
  5. DOMPERIDONE [Concomitant]
     Dosage: 10MG THREE TIMES PER DAY
     Route: 065
  6. MODOPAR [Concomitant]
     Route: 065
  7. STABLON [Concomitant]
     Route: 065
  8. OMEPRAZOLE [Concomitant]
     Route: 065

REACTIONS (6)
  - ACUTE GENERALISED EXANTHEMATOUS PUSTULOSIS [None]
  - FUNGAL INFECTION [None]
  - PRURITUS [None]
  - RASH [None]
  - RASH ERYTHEMATOUS [None]
  - TOXIC SKIN ERUPTION [None]
